FAERS Safety Report 9129253 (Version 2)
Quarter: 2013Q1

REPORT INFORMATION
  Report Type: Spontaneous
  Country: US (occurrence: US)
  Receive Date: 20130125
  Receipt Date: 20130308
  Transmission Date: 20140127
  Serious: Yes (Disabling, Other)
  Sender: FDA-Public Use
  Company Number: US-PERRIGO-13US000400

PATIENT
  Age: 45 Year
  Sex: Male
  Weight: 56.69 kg

DRUGS (4)
  1. LICE SHMPO LIQ 866 [Suspect]
     Indication: PRURITUS
     Dosage: ONE APPLICATION TO SCALP, SINGLE
     Route: 061
     Dates: start: 20130114, end: 20130114
  2. SEROQUEL [Concomitant]
     Indication: AFFECTIVE DISORDER
     Dosage: UNK
     Route: 048
  3. NEURONTIN [Concomitant]
     Indication: AFFECTIVE DISORDER
     Dosage: UNK
     Route: 048
  4. LISINOPRIL [Concomitant]
     Indication: HYPERTENSION
     Dosage: UNK
     Route: 048
     Dates: start: 201205

REACTIONS (9)
  - Chemical burns of eye [Recovering/Resolving]
  - Chemical eye injury [Recovering/Resolving]
  - Ocular hyperaemia [Recovering/Resolving]
  - Photophobia [Not Recovered/Not Resolved]
  - Eye pain [Recovering/Resolving]
  - Vision blurred [Recovering/Resolving]
  - Eye irritation [Recovering/Resolving]
  - Accidental exposure to product [Recovered/Resolved]
  - Off label use [Recovered/Resolved]
